FAERS Safety Report 10906687 (Version 1)
Quarter: 2015Q1

REPORT INFORMATION
  Report Type: Spontaneous
  Country: US (occurrence: None)
  Receive Date: 20150309
  Receipt Date: 20150309
  Transmission Date: 20150721
  Serious: Yes (Other)
  Sender: FDA-Public Use
  Company Number: 9039997-2015-00010

PATIENT
  Age: 54 Year
  Sex: Male

DRUGS (6)
  1. MOBIC [Concomitant]
     Active Substance: MELOXICAM
  2. LEVULAN KERASTICK [Suspect]
     Active Substance: AMINOLEVULINIC ACID HYDROCHLORIDE
     Indication: ACTINIC KERATOSIS
     Route: 061
     Dates: start: 20141106
  3. PRAVASTATIN [Concomitant]
     Active Substance: PRAVASTATIN\PRAVASTATIN SODIUM
  4. LEVULAN KERASTICK [Suspect]
     Active Substance: AMINOLEVULINIC ACID HYDROCHLORIDE
     Indication: ACTINIC KERATOSIS
     Route: 061
     Dates: start: 20141216
  5. LISINOPRIL. [Concomitant]
     Active Substance: LISINOPRIL
  6. WELLBUTRIN [Concomitant]
     Active Substance: BUPROPION HYDROCHLORIDE

REACTIONS (3)
  - Erythema [None]
  - Squamous cell carcinoma of skin [None]
  - Paraesthesia [None]

NARRATIVE: CASE EVENT DATE: 20150219
